FAERS Safety Report 6115223-3 (Version None)
Quarter: 2009Q1

REPORT INFORMATION
  Report Type: 
  Country: None (occurrence: None)
  Receive Date: 20090313
  Receipt Date: 20090306
  Transmission Date: 20090719
  Serious: Yes (Hospitalization)
  Sender: FDA-Public Use
  Company Number: BR-MERCK-0903USA01484

PATIENT
  Age: 59 Year
  Sex: Female

DRUGS (4)
  1. DEXAMETHASONE [Suspect]
     Indication: GLIOBLASTOMA MULTIFORME
     Route: 048
  2. TEMOZOLOMIDE [Suspect]
     Indication: GLIOBLASTOMA MULTIFORME
     Route: 065
  3. TEMOZOLOMIDE [Suspect]
     Route: 065
  4. PHENOBARBITAL [Concomitant]
     Indication: GLIOBLASTOMA MULTIFORME
     Route: 065

REACTIONS (2)
  - IMMUNOSUPPRESSION [None]
  - TUBERCULOSIS [None]
